FAERS Safety Report 5026271-9 (Version None)
Quarter: 2006Q2

REPORT INFORMATION
  Report Type: 
  Country: None (occurrence: None)
  Receive Date: 20060608
  Receipt Date: 20060530
  Transmission Date: 20061013
  Serious: Yes (Disabling, Other)
  Sender: FDA-Public Use
  Company Number: 2005160905

PATIENT
  Age: 54 Year
  Sex: Female
  Weight: 93 kg

DRUGS (6)
  1. LYRICA [Suspect]
     Indication: NEURALGIA
     Dosage: 300 MG (75 MG, 2 IN 1 D), ORAL
     Route: 048
     Dates: start: 20050121, end: 20050318
  2. GABAPENTIN [Suspect]
     Indication: NEURALGIA
     Dosage: ORAL
     Route: 048
  3. ATACAND [Concomitant]
  4. CENTYL MITE W/POTASSIUM CHLORIDE (BENDROFLUMETHIAZIDE, POTASSIUM CHLOR [Concomitant]
  5. ZARATOR ^PFIZER^ (ATORVASTATIN) [Concomitant]
  6. MOBIC [Concomitant]

REACTIONS (8)
  - ACCIDENTAL OVERDOSE [None]
  - DIZZINESS [None]
  - DYSGEUSIA [None]
  - DYSGRAPHIA [None]
  - FEELING ABNORMAL [None]
  - PAROSMIA [None]
  - SPEECH DISORDER [None]
  - WEIGHT INCREASED [None]
